FAERS Safety Report 16062002 (Version 1)
Quarter: 2019Q2

REPORT INFORMATION
  Report Type: Spontaneous
  Country: US (occurrence: US)
  Receive Date: 20190312
  Receipt Date: 20190312
  Transmission Date: 20190711
  Serious: Yes (Hospitalization)
  Sender: FDA-Public Use
  Company Number: None

PATIENT
  Sex: Male

DRUGS (6)
  1. TORSEMIDE, TRIAMT/HCTZ [Concomitant]
  2. CARVEDILOL, FEROSUL [Concomitant]
  3. LOSARTAN POT, OMEPRAZOLE [Concomitant]
  4. CALC ACETATE, CARTIA XT [Concomitant]
  5. SENSIPAR [Suspect]
     Active Substance: CINACALCET HYDROCHLORIDE
     Indication: PRODUCT USED FOR UNKNOWN INDICATION
     Dosage: ?          OTHER FREQUENCY:Q EVENING;?
     Route: 048
     Dates: start: 20181101
  6. AMLODIPINE, ATORVASTATIN [Concomitant]

REACTIONS (3)
  - Peripheral swelling [None]
  - Therapy cessation [None]
  - Joint effusion [None]
